FAERS Safety Report 16492856 (Version 1)
Quarter: 2019Q2

REPORT INFORMATION
  Report Type: Spontaneous
  Country: US (occurrence: US)
  Receive Date: 20190628
  Receipt Date: 20190628
  Transmission Date: 20190711
  Serious: Yes (Hospitalization)
  Sender: FDA-Public Use
  Company Number: US-INDIVIOR LIMITED-INDV-119400-2019

PATIENT
  Age: 37 Year
  Sex: Female

DRUGS (1)
  1. SUBLOCADE [Suspect]
     Active Substance: BUPRENORPHINE
     Indication: DRUG DEPENDENCE
     Dosage: UNK, QMO (2 INJECTIONS)
     Route: 065
     Dates: start: 20190318

REACTIONS (1)
  - Drug detoxification [Not Recovered/Not Resolved]

NARRATIVE: CASE EVENT DATE: 20190328
